FAERS Safety Report 5233770-3 (Version None)
Quarter: 2007Q1

REPORT INFORMATION
  Report Type: 
  Country: None (occurrence: None)
  Receive Date: 20070208
  Receipt Date: 20070129
  Transmission Date: 20070707
  Serious: Yes (Other)
  Sender: FDA-Public Use
  Company Number: US-ROCHE-480219

PATIENT
  Age: 70 Year
  Sex: Female

DRUGS (1)
  1. BONIVA [Suspect]
     Indication: DRUG USE FOR UNKNOWN INDICATION
     Dosage: SHE HAD THE BONIVA INJECTION IN THE BEGINNING OF JANUARY.
     Route: 065
     Dates: start: 20070105

REACTIONS (8)
  - ASTHENIA [None]
  - DIARRHOEA [None]
  - EATING DISORDER [None]
  - FATIGUE [None]
  - HEPATIC PAIN [None]
  - HEPATOMEGALY [None]
  - JAUNDICE [None]
  - NAUSEA [None]
